FAERS Safety Report 10058438 (Version 3)
Quarter: 2019Q1

REPORT INFORMATION
  Report Type: Report from Study
  Country: US (occurrence: US)
  Receive Date: 20140404
  Receipt Date: 20190117
  Transmission Date: 20190417
  Serious: Yes (Other)
  Sender: FDA-Public Use
  Company Number: US-SA-2014SA041381

PATIENT
  Age: 47 Year
  Sex: Female
  Weight: 80.7 kg

DRUGS (11)
  1. CEREZYME [Suspect]
     Active Substance: IMIGLUCERASE
     Dosage: DOSE: 8800.00 (UNITS NOT PROVIDED) FREQUENCY: Q3
     Route: 041
     Dates: start: 20170919
  2. BENADRYL [Concomitant]
     Active Substance: DIPHENHYDRAMINE HYDROCHLORIDE
     Dosage: 25 MG, Q3W
     Route: 042
  3. CEREZYME [Suspect]
     Active Substance: IMIGLUCERASE
     Indication: GAUCHER^S DISEASE
     Dosage: 120 IU/KG, Q3W
     Route: 041
     Dates: start: 20001019, end: 201703
  4. VERPAMIL [Concomitant]
     Active Substance: VERAPAMIL HYDROCHLORIDE
     Dosage: 1 DF(120 UNK), Q12H
  5. MAXALT [Concomitant]
     Active Substance: RIZATRIPTAN BENZOATE
     Indication: MIGRAINE
  6. LIALDA [Concomitant]
     Active Substance: MESALAMINE
     Indication: COLITIS ULCERATIVE
     Dosage: 1.2 G, QD
     Route: 048
  7. METOPROLOL. [Concomitant]
     Active Substance: METOPROLOL
     Indication: HYPERTENSION
     Dosage: 25 MG, QD
     Route: 048
  8. SIMVASTATIN. [Concomitant]
     Active Substance: SIMVASTATIN
     Indication: HYPERCHOLESTEROLAEMIA
     Dosage: 5 MG, QD
     Route: 048
  9. SYNTHROID [Concomitant]
     Active Substance: LEVOTHYROXINE SODIUM
     Indication: HYPOTHYROIDISM
     Dosage: 1 DF(150 UNK), QD
     Route: 048
     Dates: start: 1998
  10. VITAMIN D [Concomitant]
     Active Substance: CHOLECALCIFEROL
     Dosage: 2000 U, QW
  11. BENADRYL [Concomitant]
     Active Substance: DIPHENHYDRAMINE HYDROCHLORIDE
     Indication: PRURITUS
     Dosage: 75 MG, Q3W
     Route: 042

REACTIONS (14)
  - Arrhythmia [Recovered/Resolved]
  - Palpitations [Recovered/Resolved]
  - Fatigue [Recovered/Resolved]
  - Asthenia [Recovered/Resolved]
  - Hysterectomy [Unknown]
  - Muscle twitching [Recovering/Resolving]
  - Pruritus [Recovering/Resolving]
  - Colitis [Recovered/Resolved]
  - Fungal infection [Recovered/Resolved]
  - Muscle spasms [Recovering/Resolving]
  - Back pain [Recovering/Resolving]
  - Diarrhoea [Not Recovered/Not Resolved]
  - Breast calcifications [Unknown]
  - Vomiting [Unknown]

NARRATIVE: CASE EVENT DATE: 20140327
